FAERS Safety Report 22651791 (Version 1)
Quarter: 2023Q2

REPORT INFORMATION
  Report Type: Spontaneous
  Country: US (occurrence: US)
  Receive Date: 20230628
  Receipt Date: 20230628
  Transmission Date: 20230722
  Serious: Yes (Hospitalization)
  Sender: FDA-Public Use
  Company Number: US-CTI BIOPHARMA-2023US03598

PATIENT

DRUGS (13)
  1. VONJO [Suspect]
     Active Substance: PACRITINIB
     Indication: Myelofibrosis
     Dosage: 200 MG, BID
     Route: 048
     Dates: start: 20230401
  2. PROCRIT [Concomitant]
     Active Substance: ERYTHROPOIETIN
  3. NALOXONE [Concomitant]
     Active Substance: NALOXONE
  4. PREDNISONE [Concomitant]
     Active Substance: PREDNISONE
  5. ULORIC [Concomitant]
     Active Substance: FEBUXOSTAT
  6. AMLODIPINE [Concomitant]
     Active Substance: AMLODIPINE BESYLATE
  7. ASPIRIN [Concomitant]
     Active Substance: ASPIRIN
  8. HYDROXYZINE [Concomitant]
     Active Substance: HYDROXYZINE HYDROCHLORIDE
  9. CALCIUM\CHOLECALCIFEROL [Concomitant]
     Active Substance: CALCIUM\CHOLECALCIFEROL
  10. ATORVASTATIN [Concomitant]
     Active Substance: ATORVASTATIN
  11. FERROUS SULFATE [Concomitant]
     Active Substance: FERROUS SULFATE
  12. FOLIC ACID [Concomitant]
     Active Substance: FOLIC ACID
  13. VITAMIN D3 [Concomitant]
     Active Substance: CHOLECALCIFEROL

REACTIONS (1)
  - Platelet count decreased [Unknown]
